FAERS Safety Report 25918755 (Version 1)
Quarter: 2025Q4

REPORT INFORMATION
  Report Type: Spontaneous
  Country: US (occurrence: US)
  Receive Date: 20251014
  Receipt Date: 20251014
  Transmission Date: 20260118
  Serious: No
  Sender: SUNOVION
  Company Number: US-SMPA-2025SPA012403

PATIENT
  Age: 71 Year
  Sex: Male

DRUGS (1)
  1. ORGOVYX [Suspect]
     Active Substance: RELUGOLIX
     Indication: Prostate cancer
     Dosage: 120/TAKE ONE TABLET BY MOUTH ONCE DAILY AROUND THE SAME TIME
     Route: 048

REACTIONS (3)
  - Decreased appetite [Unknown]
  - Hot flush [Unknown]
  - Therapy interrupted [Unknown]
